FAERS Safety Report 10479531 (Version 1)
Quarter: 2014Q3

REPORT INFORMATION
  Report Type: Spontaneous
  Country: US (occurrence: None)
  Receive Date: 20140926
  Receipt Date: 20140926
  Transmission Date: 20150326
  Serious: Yes (Other)
  Sender: FDA-Public Use
  Company Number: None

PATIENT

DRUGS (1)
  1. TISSEEL [Suspect]
     Active Substance: FIBRINOGEN HUMAN\THROMBIN HUMAN
     Dosage: SURGICAL SITE
     Dates: start: 20140905

REACTIONS (2)
  - Liquid product physical issue [None]
  - Product solubility abnormal [None]

NARRATIVE: CASE EVENT DATE: 20140905
